FAERS Safety Report 8539565-7 (Version None)
Quarter: 2012Q3

REPORT INFORMATION
  Report Type: 
  Country: None (occurrence: None)
  Receive Date: 20120726
  Receipt Date: 20120716
  Transmission Date: 20120928
  Serious: Yes (Hospitalization)
  Sender: FDA-Public Use
  Company Number: US-ELI_LILLY_AND_COMPANY-US201204004848

PATIENT
  Sex: Female
  Weight: 62 kg

DRUGS (18)
  1. LEVOTHYROXINE SODIUM [Concomitant]
  2. ZOLPIDEM [Concomitant]
  3. TOLTERODINE TARTRATE [Concomitant]
  4. GABAPENTIN [Concomitant]
  5. ERGOCALCIFEROL [Concomitant]
  6. ESTRADIOL [Concomitant]
  7. CARBAMAZEPINE [Concomitant]
  8. HYDROCORTISONE [Concomitant]
  9. MORPHINE SULFATE [Concomitant]
  10. ACETAMINOPHEN W/BUTALBITAL [Concomitant]
  11. OMEPRAZOLE [Concomitant]
  12. HUMATROPE [Suspect]
     Indication: HYPOPITUITARISM
     Dosage: 0.5 MG, QD, FOUR TIMES A WEEK
     Route: 058
     Dates: start: 20020101
  13. FLUCONAZOLE [Concomitant]
  14. VENLAFAXINE [Concomitant]
  15. MOXIFLOXACIN [Concomitant]
  16. VITAMIN B-12 [Concomitant]
  17. PAROXETINE [Concomitant]
  18. ALBUTEROL [Concomitant]

REACTIONS (1)
  - INFECTION [None]
